FAERS Safety Report 7634424-6 (Version None)
Quarter: 2011Q3

REPORT INFORMATION
  Report Type: 
  Country: None (occurrence: None)
  Receive Date: 20110725
  Receipt Date: 20110713
  Transmission Date: 20111222
  Serious: Yes (Other)
  Sender: FDA-Public Use
  Company Number: PHHY2011US02817

PATIENT
  Sex: Male
  Weight: 47.6 kg

DRUGS (4)
  1. MIRALAX [Concomitant]
     Dosage: UNK UKN, UNK
  2. AFINITOR [Suspect]
     Indication: CEREBRAL HAEMORRHAGE
     Dosage: 2.5 MG, DAILY
     Route: 048
     Dates: start: 20110103
  3. DEPAKOTE [Concomitant]
     Dosage: 1500 MG, DAILY
  4. ARNIKA [Concomitant]
     Dosage: UNK UKN, DAILY

REACTIONS (5)
  - AGGRESSION [None]
  - COUGH [None]
  - ACNE [None]
  - ABDOMINAL DISTENSION [None]
  - INFLAMMATION [None]
